FAERS Safety Report 9639941 (Version 2)
Quarter: 2013Q4

REPORT INFORMATION
  Report Type: Spontaneous
  Country: US (occurrence: US)
  Receive Date: 20131023
  Receipt Date: 20131126
  Transmission Date: 20140711
  Serious: Yes (Hospitalization)
  Sender: FDA-Public Use
  Company Number: US-MYLANLABS-2013S1007718

PATIENT
  Age: 62 Year
  Sex: Female
  Weight: 46.27 kg

DRUGS (5)
  1. CARBIDOPA + LEVODOPA [Suspect]
     Indication: PARKINSON^S DISEASE
     Route: 048
     Dates: start: 201210, end: 201304
  2. COMTAN [Suspect]
     Indication: PARKINSON^S DISEASE
     Route: 048
     Dates: start: 201210
  3. CARBIDOPA AND LEVODOPA TABLETS USP [Suspect]
     Indication: PARKINSON^S DISEASE
     Route: 048
  4. CARBIDOPA AND LEVODOPA TABLETS USP [Suspect]
     Indication: PARKINSON^S DISEASE
     Dosage: 25MG/100MG
     Route: 048
  5. NEUTRA-PHOS /00555301/ [Concomitant]

REACTIONS (13)
  - Drug effect delayed [Not Recovered/Not Resolved]
  - Visual acuity reduced [Not Recovered/Not Resolved]
  - Skin lesion [Not Recovered/Not Resolved]
  - Infection parasitic [Not Recovered/Not Resolved]
  - Back pain [Not Recovered/Not Resolved]
  - Muscle atrophy [Not Recovered/Not Resolved]
  - Gait disturbance [Not Recovered/Not Resolved]
  - Musculoskeletal stiffness [Not Recovered/Not Resolved]
  - Urinary incontinence [Not Recovered/Not Resolved]
  - Weight decreased [Not Recovered/Not Resolved]
  - Hyperhidrosis [Not Recovered/Not Resolved]
  - Regurgitation [Not Recovered/Not Resolved]
  - Feeling hot [Not Recovered/Not Resolved]
